FAERS Safety Report 18198852 (Version 1)
Quarter: 2020Q3

REPORT INFORMATION
  Report Type: Spontaneous
  Country: US (occurrence: US)
  Receive Date: 20200826
  Receipt Date: 20200826
  Transmission Date: 20201103
  Serious: Yes (Other)
  Sender: FDA-Public Use
  Company Number: US-MYLANLABS-2020M1073862

PATIENT
  Sex: Male
  Weight: 104 kg

DRUGS (1)
  1. WIXELA INHUB [Suspect]
     Active Substance: FLUTICASONE PROPIONATE\SALMETEROL XINAFOATE
     Indication: BRONCHITIS
     Dosage: 250/50 MCG
     Route: 055

REACTIONS (4)
  - Drug ineffective [Not Recovered/Not Resolved]
  - Cataract [Recovering/Resolving]
  - Device issue [Not Recovered/Not Resolved]
  - Productive cough [Not Recovered/Not Resolved]
